FAERS Safety Report 8214070-6 (Version None)
Quarter: 2012Q1

REPORT INFORMATION
  Report Type: 
  Country: None (occurrence: None)
  Receive Date: 20120314
  Receipt Date: 20120314
  Transmission Date: 20120608
  Serious: Yes (Other)
  Sender: FDA-Public Use
  Company Number: None

PATIENT
  Age: 33 Year
  Sex: Female

DRUGS (1)
  1. AVONEX 30MCG BIOGEN INC [Suspect]
     Dosage: 30MCG QW IM
     Route: 030
     Dates: start: 20090122, end: 20120214

REACTIONS (2)
  - INFLUENZA LIKE ILLNESS [None]
  - HEADACHE [None]
